FAERS Safety Report 15942266 (Version 2)
Quarter: 2019Q2

REPORT INFORMATION
  Report Type: Spontaneous
  Country: FR (occurrence: FR)
  Receive Date: 20190210
  Receipt Date: 20190410
  Transmission Date: 20190711
  Serious: Yes (Other)
  Sender: FDA-Public Use
  Company Number: PHHY2019FR005804

PATIENT
  Age: 87 Year
  Sex: Male

DRUGS (3)
  1. BRIMONIDINE [Suspect]
     Active Substance: BRIMONIDINE TARTRATE
     Indication: OPEN ANGLE GLAUCOMA
     Dosage: UNK UNK, BID
     Route: 047
     Dates: start: 2015
  2. DORZOLAMIDE [Concomitant]
     Active Substance: DORZOLAMIDE
     Indication: OPEN ANGLE GLAUCOMA
     Dosage: UNK, BID
     Route: 065
  3. TRAVOPROST. [Concomitant]
     Active Substance: TRAVOPROST
     Indication: OPEN ANGLE GLAUCOMA
     Dosage: UNK, QD
     Route: 065

REACTIONS (19)
  - Hyperaemia [Recovering/Resolving]
  - Keratic precipitates [Unknown]
  - Drug intolerance [Unknown]
  - Anterior chamber disorder [Unknown]
  - Corneal oedema [Recovering/Resolving]
  - Dry eye [Unknown]
  - Urticaria [Unknown]
  - Foreign body sensation in eyes [Unknown]
  - Toxicity to various agents [Unknown]
  - Ocular surface disease [Unknown]
  - Blepharitis [Unknown]
  - Concomitant disease aggravated [Unknown]
  - Corneal deposits [Unknown]
  - Pruritus [Unknown]
  - Intraocular pressure increased [Unknown]
  - Visual acuity reduced [Unknown]
  - Corneal neovascularisation [Unknown]
  - Drug hypersensitivity [Unknown]
  - Eye pain [Unknown]
